FAERS Safety Report 21070966 (Version 2)
Quarter: 2022Q3

REPORT INFORMATION
  Report Type: Report from Study
  Country: JP (occurrence: JP)
  Receive Date: 20220712
  Receipt Date: 20220801
  Transmission Date: 20221027
  Serious: No
  Sender: FDA-Public Use
  Company Number: JP-OTSUKA-2022_035154

PATIENT
  Sex: Female

DRUGS (24)
  1. ARIPIPRAZOLE [Suspect]
     Active Substance: ARIPIPRAZOLE
     Indication: Bipolar I disorder
     Dosage: 400MG/SHOT
     Route: 030
     Dates: start: 20210915, end: 20210915
  2. ARIPIPRAZOLE [Suspect]
     Active Substance: ARIPIPRAZOLE
     Dosage: 400MG/SHOT
     Route: 030
     Dates: start: 20210526, end: 20210526
  3. ARIPIPRAZOLE [Suspect]
     Active Substance: ARIPIPRAZOLE
     Dosage: 400MG/SHOT
     Route: 030
     Dates: start: 20210623, end: 20210623
  4. ARIPIPRAZOLE [Suspect]
     Active Substance: ARIPIPRAZOLE
     Dosage: 400MG/SHOT
     Route: 030
     Dates: start: 20210721, end: 20210721
  5. ARIPIPRAZOLE [Suspect]
     Active Substance: ARIPIPRAZOLE
     Dosage: 400MG/SHOT
     Route: 030
     Dates: start: 20210818, end: 20210818
  6. ARIPIPRAZOLE [Suspect]
     Active Substance: ARIPIPRAZOLE
     Dosage: 400MG/SHOT
     Route: 030
     Dates: start: 20211013, end: 20211013
  7. ARIPIPRAZOLE [Suspect]
     Active Substance: ARIPIPRAZOLE
     Dosage: 400MG/SHOT
     Route: 030
     Dates: start: 20211110, end: 20211110
  8. ARIPIPRAZOLE [Suspect]
     Active Substance: ARIPIPRAZOLE
     Dosage: 400MG/SHOT
     Route: 030
     Dates: start: 20211208, end: 20211208
  9. ARIPIPRAZOLE [Suspect]
     Active Substance: ARIPIPRAZOLE
     Dosage: 400MG/SHOT
     Route: 030
     Dates: start: 20220105, end: 20220105
  10. ARIPIPRAZOLE [Suspect]
     Active Substance: ARIPIPRAZOLE
     Dosage: 400MG/SHOT
     Route: 030
     Dates: start: 20220202, end: 20220202
  11. ARIPIPRAZOLE [Suspect]
     Active Substance: ARIPIPRAZOLE
     Dosage: 400MG/SHOT
     Route: 030
     Dates: start: 20220302, end: 20220302
  12. ARIPIPRAZOLE [Suspect]
     Active Substance: ARIPIPRAZOLE
     Dosage: 400MG/SHOT
     Route: 030
     Dates: start: 20220330, end: 20220330
  13. ARIPIPRAZOLE [Suspect]
     Active Substance: ARIPIPRAZOLE
     Dosage: 400MG/SHOT
     Route: 030
     Dates: start: 20220427, end: 20220427
  14. ARIPIPRAZOLE [Suspect]
     Active Substance: ARIPIPRAZOLE
     Dosage: 400MG/SHOT
     Route: 030
     Dates: start: 20220525, end: 20220525
  15. ARIPIPRAZOLE [Concomitant]
     Active Substance: ARIPIPRAZOLE
     Indication: Bipolar I disorder
     Dosage: 24 MG/DAY
     Route: 048
     Dates: end: 20210525
  16. ARIPIPRAZOLE [Concomitant]
     Active Substance: ARIPIPRAZOLE
     Dosage: 12 MG/DAY
     Route: 048
     Dates: start: 20210526, end: 20210608
  17. LITHIUM CARBONATE [Concomitant]
     Active Substance: LITHIUM CARBONATE
     Indication: Bipolar I disorder
     Dosage: 600 MG/DAY
     Route: 048
  18. VALPROATE SODIUM [Concomitant]
     Active Substance: VALPROATE SODIUM
     Indication: Bipolar I disorder
     Dosage: 640 MG/DAY
     Route: 048
  19. CHLORPROMAZINE HYDROCHLORIDE [Concomitant]
     Active Substance: CHLORPROMAZINE HYDROCHLORIDE
     Indication: Bipolar I disorder
     Dosage: 50 MG/DAY
     Route: 048
  20. ESZOPICLONE [Concomitant]
     Active Substance: ESZOPICLONE
     Indication: Bipolar I disorder
     Dosage: 3 MG/DAY
     Route: 048
  21. NITRAZEPAM [Concomitant]
     Active Substance: NITRAZEPAM
     Indication: Bipolar I disorder
     Dosage: 8 MG/DAY
     Route: 048
  22. ALOSENN [SENNOSIDE A+B] [Concomitant]
     Indication: Constipation
     Dosage: 0.5 G/DAY
     Route: 048
  23. EFFEXOR XR [Concomitant]
     Active Substance: VENLAFAXINE HYDROCHLORIDE
     Indication: Bipolar I disorder
     Dosage: 75 MG/DAY
     Route: 048
     Dates: start: 20211013, end: 20211019
  24. EFFEXOR XR [Concomitant]
     Active Substance: VENLAFAXINE HYDROCHLORIDE
     Dosage: 150 MG/DAY
     Route: 048
     Dates: start: 20211020, end: 20220104

REACTIONS (1)
  - Depression [Recovering/Resolving]

NARRATIVE: CASE EVENT DATE: 20210915
